FAERS Safety Report 16248156 (Version 18)
Quarter: 2025Q2

REPORT INFORMATION
  Report Type: Report from Study
  Country: BR (occurrence: BR)
  Receive Date: 20190428
  Receipt Date: 20250417
  Transmission Date: 20250717
  Serious: Yes (Death, Hospitalization, Disabling)
  Sender: BIOGEN
  Company Number: BR-BIOGEN-2019BI00729093

PATIENT
  Age: 0 Year
  Sex: Female
  Weight: 19.2 kg

DRUGS (21)
  1. SPINRAZA [Suspect]
     Active Substance: NUSINERSEN
     Indication: Spinal muscular atrophy
     Route: 050
     Dates: start: 20180901
  2. SPINRAZA [Suspect]
     Active Substance: NUSINERSEN
     Route: 050
     Dates: start: 20180901
  3. SPINRAZA [Suspect]
     Active Substance: NUSINERSEN
     Route: 050
     Dates: start: 20181003
  4. SPINRAZA [Suspect]
     Active Substance: NUSINERSEN
     Route: 050
     Dates: start: 20180101, end: 20201223
  5. SPINRAZA [Suspect]
     Active Substance: NUSINERSEN
     Route: 050
     Dates: start: 20181201
  6. SPINRAZA [Suspect]
     Active Substance: NUSINERSEN
     Route: 050
  7. SPINRAZA [Suspect]
     Active Substance: NUSINERSEN
     Route: 050
  8. SPINRAZA [Suspect]
     Active Substance: NUSINERSEN
     Route: 050
  9. SPINRAZA [Suspect]
     Active Substance: NUSINERSEN
     Route: 050
  10. SPINRAZA [Suspect]
     Active Substance: NUSINERSEN
     Route: 050
     Dates: start: 201812, end: 20240816
  11. SPINRAZA [Suspect]
     Active Substance: NUSINERSEN
     Route: 050
  12. BECLOMETHASONE DIPROPIONATE [Concomitant]
     Active Substance: BECLOMETHASONE DIPROPIONATE
     Indication: Product used for unknown indication
     Route: 050
  13. AMBROXOL ACEFYLLINATE [Concomitant]
     Active Substance: AMBROXOL ACEFYLLINATE
     Indication: Product used for unknown indication
     Route: 050
  14. ALLEGRA [Concomitant]
     Active Substance: FEXOFENADINE HYDROCHLORIDE
     Indication: Product used for unknown indication
     Route: 050
  15. Astro [Concomitant]
     Indication: Product used for unknown indication
     Route: 050
  16. BEROTEC [Concomitant]
     Active Substance: FENOTEROL HYDROBROMIDE
     Indication: Respiratory distress
     Route: 050
  17. BEROTEC [Concomitant]
     Active Substance: FENOTEROL HYDROBROMIDE
     Dosage: FOR RESPIRATORY DISTRESS AND BRONCHOSPASM
     Route: 050
  18. ATROVENT [Concomitant]
     Active Substance: IPRATROPIUM BROMIDE
     Indication: Respiratory distress
     Route: 050
  19. ATROVENT [Concomitant]
     Active Substance: IPRATROPIUM BROMIDE
     Route: 050
  20. PREDNISONE [Concomitant]
     Active Substance: PREDNISONE
     Indication: Respiratory distress
     Route: 050
  21. DOMPERIDONE [Concomitant]
     Active Substance: DOMPERIDONE
     Indication: Product used for unknown indication
     Route: 050

REACTIONS (52)
  - Respiratory failure [Fatal]
  - Cardio-respiratory arrest [Fatal]
  - Infection [Fatal]
  - Seizure [Fatal]
  - Heart rate decreased [Recovered/Resolved]
  - Cardiac arrest [Recovered/Resolved]
  - Sepsis [Not Recovered/Not Resolved]
  - Spinal muscular atrophy [Fatal]
  - Gastric haemorrhage [Not Recovered/Not Resolved]
  - Mobility decreased [Not Recovered/Not Resolved]
  - Pneumonia [Unknown]
  - Increased bronchial secretion [Unknown]
  - Oxygen saturation decreased [Recovered/Resolved]
  - Snoring [Recovered/Resolved]
  - Hypertension [Unknown]
  - Weight decreased [Recovered/Resolved]
  - Pain [Unknown]
  - Enzyme abnormality [Recovered/Resolved]
  - Gastrin secretion disorder [Unknown]
  - Pneumonia aspiration [Recovered/Resolved with Sequelae]
  - Anal incontinence [Recovered/Resolved]
  - Hyperhidrosis [Recovered/Resolved]
  - Pallor [Recovered/Resolved]
  - Body temperature decreased [Recovered/Resolved]
  - Bradycardia [Recovered/Resolved]
  - Tracheal haemorrhage [Recovered/Resolved]
  - Atrophy [Not Recovered/Not Resolved]
  - Syncope [Recovered/Resolved]
  - C-reactive protein abnormal [Recovered/Resolved]
  - Infection [Not Recovered/Not Resolved]
  - Device malfunction [Unknown]
  - Decreased immune responsiveness [Unknown]
  - Gastrostomy tube site complication [Unknown]
  - Abdominal pain [Not Recovered/Not Resolved]
  - Diarrhoea [Not Recovered/Not Resolved]
  - Gastritis [Not Recovered/Not Resolved]
  - Tearfulness [Not Recovered/Not Resolved]
  - Asphyxia [Unknown]
  - Heart rate increased [Recovered/Resolved]
  - Tachycardia [Not Recovered/Not Resolved]
  - Sputum discoloured [Not Recovered/Not Resolved]
  - Increased viscosity of bronchial secretion [Not Recovered/Not Resolved]
  - Nasopharyngitis [Not Recovered/Not Resolved]
  - Respiratory rate increased [Recovered/Resolved]
  - Secretion discharge [Not Recovered/Not Resolved]
  - Blood glucose abnormal [Recovered/Resolved]
  - Diarrhoea [Recovered/Resolved]
  - Heart rate increased [Unknown]
  - Diarrhoea [Unknown]
  - Procedural pain [Unknown]
  - Pyrexia [Unknown]
  - Vomiting [Unknown]

NARRATIVE: CASE EVENT DATE: 20171006
